FAERS Safety Report 7294241-6 (Version None)
Quarter: 2011Q1

REPORT INFORMATION
  Report Type: 
  Country: None (occurrence: None)
  Receive Date: 20110215
  Receipt Date: 20110208
  Transmission Date: 20110831
  Serious: Yes (Hospitalization)
  Sender: FDA-Public Use
  Company Number: NL-ABBOTT-10P-114-0672408-00

PATIENT
  Sex: Female
  Weight: 57 kg

DRUGS (3)
  1. LUPRON DEPOT [Suspect]
     Indication: ENDOMETRIOSIS
     Route: 058
     Dates: start: 20100827
  2. BACLOFEN [Concomitant]
     Indication: MUSCLE SPASMS
     Dosage: 10 MG X 2 QID
     Route: 048
     Dates: start: 20080101
  3. IMPLANON [Concomitant]
     Indication: PRODUCT USED FOR UNKNOWN INDICATION
     Dosage: IMPLANT
     Dates: start: 20091001, end: 20100915

REACTIONS (5)
  - NAUSEA [None]
  - INJECTION SITE PRURITUS [None]
  - HYPERSENSITIVITY [None]
  - MENORRHAGIA [None]
  - CONDITION AGGRAVATED [None]
